FAERS Safety Report 18077282 (Version 2)
Quarter: 2020Q3

REPORT INFORMATION
  Report Type: Spontaneous
  Country: US (occurrence: US)
  Receive Date: 20200727
  Receipt Date: 20200828
  Transmission Date: 20201103
  Serious: Yes (Hospitalization)
  Sender: FDA-Public Use
  Company Number: NVSC2020US210049

PATIENT
  Age: 48 Year
  Sex: Male

DRUGS (2)
  1. MYCOPHENOLATE MOFETIL. [Suspect]
     Active Substance: MYCOPHENOLATE MOFETIL
     Indication: THROMBOTIC THROMBOCYTOPENIC PURPURA
     Dosage: 1000 MG, BID
     Route: 065
  2. RITUXIMAB. [Suspect]
     Active Substance: RITUXIMAB
     Indication: THROMBOTIC THROMBOCYTOPENIC PURPURA
     Dosage: UNK UNK, QW
     Route: 065

REACTIONS (2)
  - Thrombotic thrombocytopenic purpura [Unknown]
  - Product use in unapproved indication [Unknown]
